FAERS Safety Report 7771875-3 (Version None)
Quarter: 2011Q3

REPORT INFORMATION
  Report Type: 
  Country: None (occurrence: None)
  Receive Date: 20110922
  Receipt Date: 20100820
  Transmission Date: 20111222
  Serious: No
  Sender: FDA-Public Use
  Company Number: US-ASTRAZENECA-2010SE39646

PATIENT
  Age: 54 Year
  Sex: Female

DRUGS (13)
  1. METOPROLOL TARTRATE [Suspect]
     Route: 048
  2. ALPRAZOLAM [Concomitant]
  3. LISINOPRIL [Concomitant]
  4. SEROQUEL [Suspect]
     Indication: SLEEP DISORDER
     Route: 048
     Dates: start: 20090101
  5. GABAPENTIN [Concomitant]
  6. OXYCODONE HCL [Concomitant]
     Indication: BACK PAIN
  7. METOPROLOL TARTRATE [Suspect]
     Route: 048
  8. SPIRONOLACTONE [Concomitant]
  9. ESTRADIOL [Concomitant]
     Indication: MENOPAUSE
  10. SEROQUEL [Suspect]
     Route: 048
     Dates: start: 20090101
  11. IBUPROFEN [Concomitant]
  12. FLEXERIL [Concomitant]
  13. VENLAFAXINE HCL EXTENDED-RELEASE [Concomitant]

REACTIONS (7)
  - HYPOAESTHESIA [None]
  - INSOMNIA [None]
  - DRUG DOSE OMISSION [None]
  - INTERVERTEBRAL DISC PROTRUSION [None]
  - FALL [None]
  - FOOT FRACTURE [None]
  - HYPERTENSION [None]
